FAERS Safety Report 7864986-5 (Version None)
Quarter: 2011Q4

REPORT INFORMATION
  Report Type: 
  Country: None (occurrence: None)
  Receive Date: 20111028
  Receipt Date: 20100927
  Transmission Date: 20120403
  Serious: No
  Sender: FDA-Public Use
  Company Number: US-GLAXOSMITHKLINE-A0883527A

PATIENT
  Sex: Male

DRUGS (7)
  1. LISINOPRIL [Concomitant]
  2. FINASTERIDE [Concomitant]
  3. SIMVASTATIN [Concomitant]
  4. LEVOTHYROXINE SODIUM [Concomitant]
  5. TERAZOSIN HCL [Concomitant]
  6. ADVAIR DISKUS 100/50 [Suspect]
     Indication: CHRONIC OBSTRUCTIVE PULMONARY DISEASE
     Dosage: 1PUFF TWICE PER DAY
     Route: 055
     Dates: start: 20100401, end: 20100801
  7. ASPIRIN [Concomitant]

REACTIONS (3)
  - ORAL FUNGAL INFECTION [None]
  - DYSPHONIA [None]
  - PHARYNGEAL DISORDER [None]
